FAERS Safety Report 7182733-X (Version None)
Quarter: 2010Q4

REPORT INFORMATION
  Report Type: 
  Country: None (occurrence: None)
  Receive Date: 20101221
  Receipt Date: 20100527
  Transmission Date: 20110411
  Serious: No
  Sender: FDA-Public Use
  Company Number: US-AMGEN-TCS406349

PATIENT

DRUGS (11)
  1. ENBREL [Suspect]
     Indication: ANKYLOSING SPONDYLITIS
     Dosage: 50 MG, QWK
     Route: 058
     Dates: start: 20100212, end: 20100415
  2. ENBREL [Suspect]
     Indication: PSORIASIS
  3. MULTI-VITAMINS [Concomitant]
  4. ZOLPIDEM TARTRATE [Concomitant]
     Dosage: 10 MG, UNK
  5. ACETAMINOPHEN [Concomitant]
  6. ACETAMINOPHEN AND HYDROCODONE BITARTRATE [Concomitant]
  7. DICLOFENAC [Concomitant]
  8. VALSARTAN [Concomitant]
  9. ASCORBIC ACID [Concomitant]
  10. ERGOCALCIFEROL [Concomitant]
  11. CALCIUM [Concomitant]

REACTIONS (6)
  - CORNEAL ABRASION [None]
  - EYE ALLERGY [None]
  - PHOTOSENSITIVITY REACTION [None]
  - PSORIASIS [None]
  - SINUSITIS [None]
  - ULCERATIVE KERATITIS [None]
